FAERS Safety Report 5305774-3 (Version None)
Quarter: 2007Q2

REPORT INFORMATION
  Report Type: 
  Country: None (occurrence: None)
  Receive Date: 20070424
  Receipt Date: 20070413
  Transmission Date: 20071010
  Serious: Yes (Hospitalization)
  Sender: FDA-Public Use
  Company Number: JP-ELI_LILLY_AND_COMPANY-JP200703005130

PATIENT
  Age: 70 Year
  Sex: Male
  Weight: 42.5 kg

DRUGS (2)
  1. GEMZAR [Suspect]
     Indication: BILE DUCT CANCER STAGE III
     Dosage: 1200 MG, OTHER
     Route: 042
     Dates: start: 20070312, end: 20070312
  2. NASEA [Concomitant]
     Indication: PROPHYLAXIS OF NAUSEA AND VOMITING
     Dosage: 0.3 MG, UNK
     Route: 042
     Dates: start: 20070312, end: 20070312

REACTIONS (3)
  - BACTERIAL INFECTION [None]
  - JAUNDICE [None]
  - PYREXIA [None]
